FAERS Safety Report 24697523 (Version 1)
Quarter: 2024Q4

REPORT INFORMATION
  Report Type: Spontaneous
  Country: DE (occurrence: DE)
  Receive Date: 20241204
  Receipt Date: 20241204
  Transmission Date: 20250115
  Serious: Yes (Death, Hospitalization, Other)
  Sender: SANDOZ
  Company Number: DE-AMGEN-DEUSP2016156755

PATIENT
  Sex: Female

DRUGS (43)
  1. ADRIACIN [Suspect]
     Active Substance: DOXORUBICIN HYDROCHLORIDE
     Indication: B-cell lymphoma
     Dosage: 79 MG, Q2WK 1X/2WEEKS
     Route: 042
     Dates: start: 20160927, end: 20161124
  2. CYCLOPHOSPHAMIDE [Suspect]
     Active Substance: CYCLOPHOSPHAMIDE
     Indication: B-cell lymphoma
     Dosage: 1185 MG, Q2WK 1X/2WEEKS
     Route: 042
     Dates: start: 20160927, end: 20161124
  3. PEGFILGRASTIM [Suspect]
     Active Substance: PEGFILGRASTIM
     Dosage: 6 MG, Q2WK 1X/2WEEKS
     Route: 058
     Dates: start: 20161014
  4. PEGFILGRASTIM [Suspect]
     Active Substance: PEGFILGRASTIM
     Indication: B-cell lymphoma
     Dosage: 30 MIO IE/0,5ML, (1 IN 1 D)
     Route: 058
     Dates: start: 20161127
  5. FILGRASTIM [Suspect]
     Active Substance: FILGRASTIM
     Indication: B-cell lymphoma
     Dosage: 30 MIO IE (1 IN 1 D)
     Route: 058
     Dates: start: 20161031, end: 20161107
  6. FILGRASTIM [Suspect]
     Active Substance: FILGRASTIM
     Dosage: 30 MIO IE (1 IN 1 D)
     Route: 058
     Dates: start: 20161127
  7. LENOGRASTIM [Suspect]
     Active Substance: LENOGRASTIM
     Indication: B-cell lymphoma
     Dosage: 34 MIO IE (ONCE)
     Route: 058
     Dates: start: 20161019
  8. PREDNISONE [Suspect]
     Active Substance: PREDNISONE
     Indication: B-cell lymphoma
     Dosage: 100 MG, QD
     Route: 048
     Dates: start: 20160907, end: 20161128
  9. RITUXIMAB [Suspect]
     Active Substance: RITUXIMAB
     Indication: B-cell lymphoma
     Dosage: 590 MG, Q2WK 1X/2WEEKS
     Route: 042
     Dates: start: 20160926
  10. VINCRISTINE [Suspect]
     Active Substance: VINCRISTINE
     Indication: B-cell lymphoma
     Dosage: 3.16 MG, Q2WK 1X/2WEEKS
     Route: 042
     Dates: start: 20160927, end: 20161124
  11. ACYCLOVIR [Concomitant]
     Active Substance: ACYCLOVIR
     Indication: Infection prophylaxis
     Dosage: 800 MG, 2 IN 1 D
     Route: 048
     Dates: start: 20161027
  12. ACYCLOVIR [Concomitant]
     Active Substance: ACYCLOVIR
     Indication: Product used for unknown indication
  13. ALLEVYN [Concomitant]
     Indication: Skin ulcer
     Dosage: UNK, QD (DERMAL)
     Route: 065
     Dates: start: 20161115
  14. ALLEVYN [Concomitant]
     Dosage: UNK, QD (DERMAL)
     Route: 065
     Dates: start: 20161115
  15. ALLOPURINOL [Concomitant]
     Active Substance: ALLOPURINOL
     Indication: Prophylaxis
     Dosage: 300 MG, QD
     Route: 048
     Dates: start: 20160906
  16. AMPHOTERICIN B [Concomitant]
     Active Substance: AMPHOTERICIN B
     Indication: Infection prophylaxis
     Dosage: 1 PIPETTE, UNK
     Route: 048
     Dates: start: 20161017
  17. AMPHOTERICIN B [Concomitant]
     Active Substance: AMPHOTERICIN B
     Indication: Product used for unknown indication
  18. AMPICILLIN [Concomitant]
     Active Substance: AMPICILLIN
     Indication: Infection prophylaxis
     Dosage: 750 MG, BID (2-0-2)
     Route: 048
     Dates: start: 20160913
  19. AMPICILLIN [Concomitant]
     Active Substance: AMPICILLIN
     Indication: Product used for unknown indication
  20. CHOLECALCIFEROL [Concomitant]
     Active Substance: CHOLECALCIFEROL
     Indication: Vitamin supplementation
     Dosage: 20000 IE, (ONLY FRIDAY)
     Route: 048
     Dates: start: 20161027
  21. CHOLECALCIFEROL [Concomitant]
     Active Substance: CHOLECALCIFEROL
     Indication: Product used for unknown indication
  22. DEXPANTHENOL [Concomitant]
     Active Substance: DEXPANTHENOL
     Indication: Skin ulcer
     Dosage: UNK UNK, AS NECESSARY (PRN ATLEAST BID)
     Route: 062
     Dates: start: 20161114
  23. DULOXETINE [Concomitant]
     Active Substance: DULOXETINE
     Indication: Depression
     Dosage: 30 MG, TID
     Route: 048
     Dates: start: 20160901
  24. ENOXAPARIN SODIUM [Concomitant]
     Active Substance: ENOXAPARIN SODIUM
     Indication: Thrombosis prophylaxis
     Dosage: 5 ML, QD (1 IN 1 D) FOR 23 DAYS
     Route: 058
     Dates: start: 20160907, end: 20160929
  25. FOLIC ACID [Concomitant]
     Active Substance: FOLIC ACID
     Indication: Prophylaxis
     Dosage: 5 MILLIGRAM, 2 TIMES/WK
     Route: 048
     Dates: start: 20161027
  26. FUROSEMIDE [Concomitant]
     Active Substance: FUROSEMIDE
     Indication: Fluid retention
     Dosage: 2040 MILLIGRAM, AS NECESSARY (2040 MILLIGRAM, FOR 10 DAYS)
     Route: 042
     Dates: start: 20061116, end: 20161125
  27. LEVOFLOXACIN [Concomitant]
     Active Substance: LEVOFLOXACIN
     Indication: Infection prophylaxis
     Dosage: 500 MG, 1 IN 3 D
     Route: 048
     Dates: start: 20161017, end: 20161019
  28. LEVOFLOXACIN [Concomitant]
     Active Substance: LEVOFLOXACIN
     Indication: Product used for unknown indication
  29. POLYETHYLENE GLYCOLS [Concomitant]
     Active Substance: POLYETHYLENE GLYCOLS
     Indication: Constipation
     Dosage: 1-1-0 BAGS
     Route: 065
  30. METOCLOPRAMIDE [Concomitant]
     Active Substance: METOCLOPRAMIDE
     Indication: Nausea
     Dosage: 10 MG, AS NECESSARY
     Route: 065
  31. METOPROLOL SUCCINATE [Concomitant]
     Active Substance: METOPROLOL SUCCINATE
     Indication: Hypertension
     Dosage: 47.5 MG, 2 IN 1 D
     Route: 048
     Dates: start: 20160901
  32. MIRTAZAPINE [Concomitant]
     Active Substance: MIRTAZAPINE
     Indication: Depression
     Dosage: 15 MG, 1 IN 1 D
     Route: 048
     Dates: start: 20160901
  33. PANTOPRAZOLE SODIUM [Concomitant]
     Active Substance: PANTOPRAZOLE SODIUM
     Indication: Product used for unknown indication
     Dosage: 40 MG, 1 IN 1 D
     Route: 065
  34. PIPERACILLIN [Concomitant]
     Active Substance: PIPERACILLIN
     Indication: Oropharyngeal pain
     Dosage: 4 G, 3 IN 1 D
     Route: 042
     Dates: start: 20161019
  35. POLYETHYLENE GLYCOL [Concomitant]
     Active Substance: POLYETHYLENE GLYCOL
     Indication: Constipation
     Dosage: UNK, BID (1 POUCH)
     Route: 048
     Dates: start: 20161117
  36. RIVAROXABAN [Concomitant]
     Active Substance: RIVAROXABAN
     Indication: Oedema peripheral
     Dosage: 15 MG, 1 IN 1 D
     Route: 048
     Dates: start: 20161012
  37. RIVAROXABAN [Concomitant]
     Active Substance: RIVAROXABAN
     Indication: Oedema peripheral
  38. SULFAMETHOXAZOLE AND TRIMETHOPRIM [Concomitant]
     Active Substance: SULFAMETHOXAZOLE\TRIMETHOPRIM
     Indication: Infection prophylaxis
     Dosage: 960 MG, 1-0-1, ONLY MONDAY+THURSDAY
     Route: 048
     Dates: start: 20161027
  39. SULFAMETHOXAZOLE AND TRIMETHOPRIM [Concomitant]
     Active Substance: SULFAMETHOXAZOLE\TRIMETHOPRIM
     Indication: Product used for unknown indication
  40. TAZOBACTAM [Concomitant]
     Active Substance: TAZOBACTAM
     Indication: Oropharyngeal pain
     Dosage: 500 MG, TID
     Route: 042
     Dates: start: 20161019
  41. TORSEMIDE [Concomitant]
     Active Substance: TORSEMIDE
     Indication: Cardiac failure
     Dosage: 20 MG, QD
     Route: 048
  42. TORSEMIDE [Concomitant]
     Active Substance: TORSEMIDE
     Indication: Cardiac failure
     Dosage: 5 MG, BID FOR 41 DAYS
     Route: 048
     Dates: start: 20160901
  43. ZOPICLONE [Concomitant]
     Active Substance: ZOPICLONE
     Indication: Sleep disorder
     Dosage: 7.5 MG, 0-0-0-1
     Route: 065

REACTIONS (15)
  - Pneumonia [Fatal]
  - Dehydration [Recovered/Resolved]
  - Hypokalaemia [Recovered/Resolved]
  - Spinal fracture [Not Recovered/Not Resolved]
  - Gait inability [Unknown]
  - Loss of consciousness [Unknown]
  - Streptococcal infection [Recovered/Resolved]
  - Leukopenia [Recovered/Resolved]
  - Weight decreased [Not Recovered/Not Resolved]
  - Dysphagia [Not Recovered/Not Resolved]
  - Anaemia [Recovered/Resolved]
  - Constipation [Recovered/Resolved]
  - Thrombocytopenia [Recovered/Resolved]
  - Fatigue [Not Recovered/Not Resolved]
  - Asthenia [Unknown]

NARRATIVE: CASE EVENT DATE: 20161001
